FAERS Safety Report 5764420-5 (Version None)
Quarter: 2008Q2

REPORT INFORMATION
  Report Type: 
  Country: None (occurrence: None)
  Receive Date: 20080605
  Receipt Date: 20080522
  Transmission Date: 20081010
  Serious: Yes (Hospitalization)
  Sender: FDA-Public Use
  Company Number: 2008AL00005713

PATIENT
  Age: 74 Year
  Sex: Female

DRUGS (1)
  1. DIGOXIN [Suspect]
     Indication: ATRIAL FIBRILLATION
     Dosage: 0.125MG DAILY PO
     Route: 048

REACTIONS (3)
  - ASTHENIA [None]
  - HEART RATE DECREASED [None]
  - LOSS OF CONSCIOUSNESS [None]
